FAERS Safety Report 6103143-X (Version None)
Quarter: 2009Q1

REPORT INFORMATION
  Report Type: 
  Country: None (occurrence: None)
  Receive Date: 20090305
  Receipt Date: 20090223
  Transmission Date: 20090719
  Serious: Yes (Hospitalization, Other)
  Sender: FDA-Public Use
  Company Number: US-PFIZER INC-2009160738

PATIENT
  Sex: Female
  Weight: 77 kg

DRUGS (5)
  1. DILANTIN [Suspect]
     Indication: CONVULSION
     Dosage: 300 MG, 1X/DAY
     Dates: start: 20061001, end: 20070101
  2. PENICILLIN NOS [Suspect]
  3. TOPROL-XL [Concomitant]
     Dosage: 25 MG, UNK
  4. ADVAIR HFA [Concomitant]
     Dosage: UNK
  5. VYTORIN [Concomitant]
     Indication: HYPERCHOLESTEROLAEMIA
     Dosage: UNK

REACTIONS (10)
  - ABDOMINAL PAIN [None]
  - CHEST PAIN [None]
  - CONVULSION [None]
  - COUGH [None]
  - DIARRHOEA [None]
  - DRUG ERUPTION [None]
  - OROPHARYNGEAL PAIN [None]
  - PAIN IN EXTREMITY [None]
  - PYREXIA [None]
  - STEVENS-JOHNSON SYNDROME [None]
